FAERS Safety Report 21870057 (Version 2)
Quarter: 2023Q1

REPORT INFORMATION
  Report Type: Spontaneous
  Country: US (occurrence: US)
  Receive Date: 20230117
  Receipt Date: 20230302
  Transmission Date: 20230417
  Serious: Yes (Other)
  Sender: FDA-Public Use
  Company Number: US-BRISTOL-MYERS SQUIBB COMPANY-2023-006786

PATIENT
  Age: 68 Year
  Sex: Male
  Weight: 65.77 kg

DRUGS (2)
  1. POMALYST [Suspect]
     Active Substance: POMALIDOMIDE
     Indication: Plasma cell myeloma
     Route: 048
     Dates: start: 20221206
  2. POMALYST [Suspect]
     Active Substance: POMALIDOMIDE
     Dosage: D1-21 EVERY 28 DAYS
     Route: 048
     Dates: start: 20230114, end: 20230228

REACTIONS (2)
  - Full blood count decreased [Recovered/Resolved]
  - Immunodeficiency [Unknown]
